FAERS Safety Report 6268012-3 (Version None)
Quarter: 2009Q3

REPORT INFORMATION
  Report Type: 
  Country: None (occurrence: None)
  Receive Date: 20090706
  Receipt Date: 20090618
  Transmission Date: 20100115
  Serious: Yes (Hospitalization)
  Sender: FDA-Public Use
  Company Number: 20090603CINRY1004

PATIENT
  Age: 34 Year
  Sex: Male
  Weight: 114.76 kg

DRUGS (2)
  1. CINRYZE [Suspect]
     Indication: HEREDITARY ANGIOEDEMA
     Dosage: INTRAVENOUS
     Route: 042
  2. XANAX [Concomitant]

REACTIONS (4)
  - ANTIPHOSPHOLIPID ANTIBODIES POSITIVE [None]
  - DEEP VEIN THROMBOSIS [None]
  - JUGULAR VEIN THROMBOSIS [None]
  - SUBCLAVIAN VEIN THROMBOSIS [None]
